FAERS Safety Report 24729475 (Version 1)
Quarter: 2024Q4

REPORT INFORMATION
  Report Type: Spontaneous
  Country: US (occurrence: US)
  Receive Date: 20241213
  Receipt Date: 20241213
  Transmission Date: 20250115
  Serious: Yes (Life-Threatening, Hospitalization)
  Sender: ROCHE
  Company Number: US-ROCHE-10000071968

PATIENT
  Age: 67 Year
  Sex: Male

DRUGS (6)
  1. ALECTINIB [Suspect]
     Active Substance: ALECTINIB
     Indication: Lung adenocarcinoma
     Route: 065
     Dates: start: 2017, end: 202403
  2. LORLATINIB [Suspect]
     Active Substance: LORLATINIB
     Indication: Lung adenocarcinoma
     Route: 065
     Dates: start: 20240607, end: 202406
  3. CRIZOTINIB [Suspect]
     Active Substance: CRIZOTINIB
     Indication: Lung adenocarcinoma
     Route: 065
     Dates: start: 2016, end: 2017
  4. ATORVASTATIN [Concomitant]
     Active Substance: ATORVASTATIN
  5. DULCOLAX (BISACODYL) [Concomitant]
     Active Substance: BISACODYL
     Indication: Constipation
  6. ALIMTA [Concomitant]
     Active Substance: PEMETREXED DISODIUM

REACTIONS (8)
  - Subdural haematoma [Recovered/Resolved]
  - Seizure [Unknown]
  - Brain neoplasm [Unknown]
  - Balance disorder [Recovered/Resolved]
  - Fall [Unknown]
  - Cerebral haemorrhage [Recovered/Resolved]
  - Subdural haemorrhage [Recovered/Resolved]
  - Subarachnoid haemorrhage [Recovered/Resolved]
